FAERS Safety Report 7366332-2 (Version None)
Quarter: 2011Q1

REPORT INFORMATION
  Report Type: 
  Country: None (occurrence: None)
  Receive Date: 20110322
  Receipt Date: 20110313
  Transmission Date: 20110831
  Serious: Yes (Hospitalization, Disabling, Other)
  Sender: FDA-Public Use
  Company Number: FR-AMGEN-FRASP2011014985

PATIENT
  Age: 32 Year
  Sex: Male

DRUGS (2)
  1. ENBREL [Suspect]
     Indication: ANKYLOSING SPONDYLITIS
     Dosage: 50.0 MG, WEEKLY
     Route: 058
     Dates: start: 20080515, end: 20100301
  2. VOLTARENE                          /00372302/ [Concomitant]
     Dosage: UNK
     Route: 065
     Dates: end: 20090101

REACTIONS (4)
  - VISUAL IMPAIRMENT [None]
  - RETINAL DISORDER [None]
  - CONDITION AGGRAVATED [None]
  - ANKYLOSING SPONDYLITIS [None]
